FAERS Safety Report 6843037-5 (Version None)
Quarter: 2010Q3

REPORT INFORMATION
  Report Type: 
  Country: None (occurrence: None)
  Receive Date: 20100714
  Receipt Date: 20100705
  Transmission Date: 20110219
  Serious: Yes (Hospitalization)
  Sender: FDA-Public Use
  Company Number: GR-ABBOTT-10P-066-0647393-00

PATIENT
  Age: 53 Year
  Sex: Female
  Weight: 120 kg

DRUGS (6)
  1. HUMIRA [Suspect]
     Indication: RHEUMATOID ARTHRITIS
     Route: 058
     Dates: start: 20080512
  2. METHOTREXATE [Suspect]
     Indication: RHEUMATOID ARTHRITIS
     Route: 048
     Dates: start: 20080703
  3. CARVEPEN [Concomitant]
     Indication: HYPERTENSION
     Route: 048
     Dates: start: 20080512
  4. T4 [Concomitant]
     Indication: HYPOTHYROIDISM
     Route: 048
     Dates: start: 20091026
  5. EXFORGE [Concomitant]
     Indication: HYPERTENSION
     Dosage: 5MG/160MG 1 IN 1 D
     Route: 048
     Dates: start: 20080512
  6. DOSTINEX [Concomitant]
     Indication: PITUITARY TUMOUR BENIGN
     Route: 048
     Dates: start: 20070101

REACTIONS (4)
  - ARTHRALGIA [None]
  - PRODUCTIVE COUGH [None]
  - PYREXIA [None]
  - VIRAL INFECTION [None]
